FAERS Safety Report 16390738 (Version 4)
Quarter: 2020Q4

REPORT INFORMATION
  Report Type: Report from Study
  Country: ZA (occurrence: ZA)
  Receive Date: 20190604
  Receipt Date: 20201016
  Transmission Date: 20210113
  Serious: Yes (Other)
  Sender: FDA-Public Use
  Company Number: PHHY2018ZA153351

PATIENT
  Age: 37 Year
  Sex: Female

DRUGS (7)
  1. BACLOFEN. [Concomitant]
     Active Substance: BACLOFEN
     Indication: PRODUCT USED FOR UNKNOWN INDICATION
     Dosage: 1 DF, QD
     Route: 065
  2. DORMONOCT [Concomitant]
     Active Substance: LOPRAZOLAM
     Indication: PRODUCT USED FOR UNKNOWN INDICATION
     Dosage: 1 DF, QHS
     Route: 065
  3. TUVIGIN [Suspect]
     Active Substance: FINGOLIMOD HYDROCHLORIDE
     Dosage: 0.5 MG
     Route: 048
     Dates: start: 20181108
  4. NAPACOD [Concomitant]
     Indication: HEADACHE
     Dosage: UNK
     Route: 065
  5. MAGNESIUM [Concomitant]
     Active Substance: MAGNESIUM
     Indication: PRODUCT USED FOR UNKNOWN INDICATION
     Dosage: 1 DF, QD
     Route: 065
  6. TUVIGIN [Suspect]
     Active Substance: FINGOLIMOD HYDROCHLORIDE
     Indication: MULTIPLE SCLEROSIS
     Dosage: 0.5 MG, QD
     Route: 048
     Dates: start: 20181108
  7. ARCOXIA [Concomitant]
     Active Substance: ETORICOXIB
     Indication: PRODUCT USED FOR UNKNOWN INDICATION
     Dosage: 90 MG, QD
     Route: 065

REACTIONS (22)
  - Protein total decreased [Not Recovered/Not Resolved]
  - Expanded disability status scale [Unknown]
  - Aspartate aminotransferase decreased [Unknown]
  - Lymphocyte count decreased [Recovering/Resolving]
  - Carbon dioxide decreased [Unknown]
  - Heart rate irregular [Unknown]
  - Dizziness [Unknown]
  - Neutrophil percentage increased [Unknown]
  - Cognitive disorder [Unknown]
  - Blood count abnormal [Unknown]
  - Monocyte count increased [Unknown]
  - Headache [Unknown]
  - Lymphocyte percentage decreased [Recovering/Resolving]
  - Haemoglobin decreased [Unknown]
  - Haematocrit decreased [Unknown]
  - Basophil count decreased [Unknown]
  - Fatigue [Unknown]
  - Blood chloride increased [Unknown]
  - Hyporeflexia [Unknown]
  - Red blood cell count decreased [Unknown]
  - Blood pressure fluctuation [Unknown]
  - White blood cell count decreased [Unknown]

NARRATIVE: CASE EVENT DATE: 20181108
